FAERS Safety Report 20411875 (Version 1)
Quarter: 2022Q1

REPORT INFORMATION
  Report Type: Other
  Country: US (occurrence: US)
  Receive Date: 20220201
  Receipt Date: 20220201
  Transmission Date: 20220424
  Serious: Yes (Hospitalization, Other)
  Sender: FDA-Public Use
  Company Number: US-NEUROCRINE BIOSCIENCES INC.-2022NBI00414

PATIENT

DRUGS (3)
  1. INGREZZA [Suspect]
     Active Substance: VALBENAZINE
     Indication: Tardive dyskinesia
     Dosage: 40 MILLIGRAM, QD
     Route: 048
     Dates: start: 20211201, end: 20220112
  2. ABILIFY [Concomitant]
     Active Substance: ARIPIPRAZOLE
     Dosage: 400 MILLIGRAM MONTHLY
     Route: 030
  3. QUETIAPINE [Concomitant]
     Active Substance: QUETIAPINE
     Dosage: UNK
     Route: 048

REACTIONS (3)
  - Chest pain [Recovered/Resolved]
  - Chest discomfort [Recovered/Resolved]
  - Electrocardiogram abnormal [Unknown]

NARRATIVE: CASE EVENT DATE: 20220105
